FAERS Safety Report 11258801 (Version 1)
Quarter: 2015Q2

REPORT INFORMATION
  Report Type: Spontaneous
  Country: US (occurrence: None)
  Receive Date: 20150617
  Receipt Date: 20150617
  Transmission Date: 20150821
  Serious: No
  Sender: FDA-Public Use
  Company Number: 2014TASUS000530

PATIENT
  Age: 61 Year
  Sex: Male
  Weight: 90.7 kg

DRUGS (2)
  1. HETLIOZ [Suspect]
     Active Substance: TASIMELTEON
     Indication: CIRCADIAN RHYTHM SLEEP DISORDER
     Route: 048
  2. CITALOPRAM (CITALOPRAM HYDROCHLORIDE) [Concomitant]

REACTIONS (4)
  - Back injury [None]
  - Feeling abnormal [None]
  - Fall [None]
  - Sciatica [None]
